FAERS Safety Report 8586171-4 (Version None)
Quarter: 2012Q3

REPORT INFORMATION
  Report Type: 
  Country: None (occurrence: None)
  Receive Date: 20120810
  Receipt Date: 20120413
  Transmission Date: 20120928
  Serious: Yes (Hospitalization)
  Sender: FDA-Public Use
  Company Number: DE-GLAXOSMITHKLINE-B0796485A

PATIENT
  Sex: Female
  Weight: 61 kg

DRUGS (7)
  1. ZOPICLON [Concomitant]
     Indication: SLEEP DISORDER
     Dosage: 7.5MG PER DAY
     Route: 048
     Dates: start: 20110801
  2. BLINDED TRIAL MEDICATION [Suspect]
     Indication: OVARIAN CANCER
     Dosage: 800MG PER DAY
     Route: 048
     Dates: start: 20120218
  3. ATACAND [Concomitant]
     Indication: HYPERTENSION
     Dosage: 16MG PER DAY
     Route: 048
     Dates: start: 19800102
  4. TOPOTECAN HYDROCHLORIDE [Suspect]
     Indication: OVARIAN CANCER
     Dosage: 1.25MG PER DAY
     Route: 042
     Dates: start: 20120213
  5. LOPERAMIDE [Concomitant]
     Indication: DIARRHOEA
     Dosage: 12MG PER DAY
     Route: 048
     Dates: start: 20110801
  6. ATACAND HCT [Concomitant]
     Indication: HYPERTENSION
     Dosage: 16MG PER DAY
     Route: 048
     Dates: start: 19800102
  7. AMLODIPINE [Concomitant]
     Indication: HYPERTENSION
     Dosage: 5MG PER DAY
     Route: 048
     Dates: start: 19800102

REACTIONS (5)
  - CANDIDIASIS [None]
  - HYPONATRAEMIA [None]
  - CATHETER SITE INFECTION [None]
  - HYPOKALAEMIA [None]
  - DEVICE RELATED INFECTION [None]
